FAERS Safety Report 7820167 (Version 2)
Quarter: 2013Q1

REPORT INFORMATION
  Report Type: Spontaneous
  Country: US (occurrence: US)
  Receive Date: 20110221
  Receipt Date: 20130116
  Transmission Date: 20140127
  Serious: Yes (Hospitalization, Other)
  Sender: FDA-Public Use
  Company Number: US-ROCHE-735882

PATIENT
  Age: 39 None
  Sex: Female
  Weight: 68 kg

DRUGS (3)
  1. ACCUTANE [Suspect]
     Indication: ACNE CYSTIC
     Route: 065
     Dates: start: 19930101, end: 19930401
  2. ACCUTANE [Suspect]
     Route: 065
     Dates: start: 19970506, end: 199706
  3. ACCUTANE [Suspect]
     Route: 065
     Dates: start: 19930610, end: 19931223

REACTIONS (11)
  - Suicide attempt [Unknown]
  - Colitis ulcerative [Unknown]
  - Rectal haemorrhage [Unknown]
  - Abdominal pain [Unknown]
  - Nausea [Unknown]
  - Depression [Unknown]
  - Inflammatory bowel disease [Unknown]
  - Arthritis [Unknown]
  - Irritable bowel syndrome [Unknown]
  - Peptic ulcer [Unknown]
  - Diverticulum [Unknown]
